FAERS Safety Report 11365204 (Version 1)
Quarter: 2015Q3

REPORT INFORMATION
  Report Type: Report from Study
  Country: US (occurrence: US)
  Receive Date: 20150811
  Receipt Date: 20150811
  Transmission Date: 20151125
  Serious: Yes (Hospitalization)
  Sender: FDA-Public Use
  Company Number: US-ACTELION-A-NJ2015-122114

PATIENT
  Age: 52 Year
  Sex: Female

DRUGS (3)
  1. MACITENTAN [Suspect]
     Active Substance: MACITENTAN
     Indication: PULMONARY ARTERIAL HYPERTENSION
     Dosage: 10 MG, QD
     Route: 048
  2. REVATIO [Concomitant]
     Active Substance: SILDENAFIL CITRATE
  3. OXYGEN. [Concomitant]
     Active Substance: OXYGEN

REACTIONS (2)
  - Syncope [Unknown]
  - Arrhythmia [Unknown]
